FAERS Safety Report 8516235-2 (Version None)
Quarter: 2012Q3

REPORT INFORMATION
  Report Type: 
  Country: None (occurrence: None)
  Receive Date: 20120717
  Receipt Date: 20120705
  Transmission Date: 20120928
  Serious: Yes (Death, Life-Threatening, Hospitalization)
  Sender: FDA-Public Use
  Company Number: JP-FRI-1000036599

PATIENT
  Sex: Female
  Weight: 46 kg

DRUGS (11)
  1. LEXAPRO [Suspect]
     Indication: MAJOR DEPRESSION
     Dosage: 10 MG
     Route: 048
     Dates: start: 20120322, end: 20120501
  2. CLONAZEPAM [Concomitant]
     Indication: DEPRESSION
     Dosage: 0.5 MG
     Route: 048
     Dates: start: 20120308, end: 20120501
  3. NESINA [Concomitant]
     Indication: DIABETES MELLITUS
     Dosage: 25 MG
     Route: 048
     Dates: start: 20120308, end: 20120501
  4. MIRTAZAPINE [Concomitant]
     Dates: start: 20120322, end: 20120405
  5. ASPIRIN [Concomitant]
     Dosage: 100 MG
     Route: 048
     Dates: start: 20120308, end: 20120501
  6. SILECE [Concomitant]
     Indication: DEPRESSION
     Dosage: 2 MG
     Route: 048
     Dates: start: 20120308, end: 20120501
  7. TRAZODONE HYDROCHLORIDE [Concomitant]
     Indication: DEPRESSION
     Dosage: 50 MG
     Route: 048
     Dates: start: 20120308, end: 20120501
  8. PROMAZINE HYDROCHLORIDE [Concomitant]
     Route: 048
  9. METFORMIN HCL [Concomitant]
     Dosage: 750 MG
     Route: 048
     Dates: start: 20120308, end: 20120501
  10. LANSOPRAZOLE [Concomitant]
     Route: 048
  11. DEPAS [Concomitant]
     Indication: DEPRESSION
     Dosage: 1 MG
     Route: 048
     Dates: start: 20120308, end: 20120501

REACTIONS (2)
  - ALTERED STATE OF CONSCIOUSNESS [None]
  - PNEUMONIA [None]
